FAERS Safety Report 7017856-9 (Version None)
Quarter: 2010Q3

REPORT INFORMATION
  Report Type: 
  Country: None (occurrence: None)
  Receive Date: 20100928
  Receipt Date: 20100908
  Transmission Date: 20110219
  Serious: Yes (Life-Threatening)
  Sender: FDA-Public Use
  Company Number: JP-WYE-H17112610

PATIENT
  Age: 77 Year
  Sex: Male
  Weight: 69.5 kg

DRUGS (13)
  1. ANCARON [Suspect]
     Indication: ATRIAL TACHYCARDIA
     Route: 048
     Dates: start: 20070101, end: 20100702
  2. AVELOX [Suspect]
     Indication: PNEUMONIA
     Route: 048
     Dates: start: 20100623, end: 20100629
  3. GENINAX [Concomitant]
     Dosage: 400 MG
     Dates: start: 20100630, end: 20100701
  4. RENIVACE [Concomitant]
     Dosage: UNSPECIFIED
     Dates: end: 20100701
  5. LASIX [Concomitant]
     Dosage: UNSPECIFIED
     Dates: end: 20100701
  6. FLUTICASONE PROPIONATE/SALMETEROL XINAFOATE [Concomitant]
     Dosage: UNSPECIFIED
     Dates: end: 20100701
  7. WARFARIN [Concomitant]
     Dosage: UNSPECIFIED
     Dates: end: 20100701
  8. LIPITOR [Concomitant]
     Dosage: UNSPECIFIED
     Dates: end: 20100701
  9. MAGNESIUM OXIDE [Concomitant]
     Dosage: UNSPECIFIED
     Dates: end: 20100701
  10. POLYCARBOPHIL CALCIUM [Concomitant]
     Dosage: UNSPECIFIED
     Dates: end: 20100701
  11. ACETYLSALICYLIC ACID/ALUMINIUM GLYCINATE/MAGNESIUM CARBONATE [Concomitant]
     Dosage: UNSPECIFIED
     Dates: end: 20100701
  12. ACARDI [Concomitant]
     Dosage: UNSPECIFIED
     Dates: end: 20100701
  13. ALDACTONE [Concomitant]
     Dosage: UNSPECIFIED
     Dates: end: 20100701

REACTIONS (10)
  - ATRIAL FIBRILLATION [None]
  - ATRIAL FLUTTER [None]
  - BRADYCARDIA [None]
  - CARDIOGENIC SHOCK [None]
  - LOSS OF CONSCIOUSNESS [None]
  - PNEUMONIA [None]
  - RESPIRATORY RATE INCREASED [None]
  - SYNCOPE [None]
  - VENTRICULAR FIBRILLATION [None]
  - VOMITING [None]
